FAERS Safety Report 4909904-4 (Version None)
Quarter: 2006Q1

REPORT INFORMATION
  Report Type: 
  Country: None (occurrence: None)
  Receive Date: 20060208
  Receipt Date: 20060202
  Transmission Date: 20060701
  Serious: No
  Sender: FDA-Public Use
  Company Number: TAP2006Q00213

PATIENT
  Age: 24 Year
  Sex: Female

DRUGS (2)
  1. LUPRON DEPOT-3 [Suspect]
     Indication: ENDOMETRIOSIS
     Dosage: 11.25 MG, 1 IN 3 M, INTRAMUSCULAR
     Route: 030
     Dates: start: 20051201
  2. LEXAPRO [Concomitant]

REACTIONS (2)
  - CERVICAL MYELOPATHY [None]
  - UPPER MOTOR NEURONE LESION [None]
